FAERS Safety Report 25665046 (Version 3)
Quarter: 2025Q4

REPORT INFORMATION
  Report Type: Report from Study
  Country: EU (occurrence: EU)
  Receive Date: 20250811
  Receipt Date: 20251222
  Transmission Date: 20260119
  Serious: Yes (Hospitalization, Other)
  Sender: PFIZER
  Company Number: EU-GSK-FR2025GSK077261

PATIENT
  Age: 54 Year
  Sex: Female

DRUGS (9)
  1. CARBOPLATIN [Suspect]
     Active Substance: CARBOPLATIN
     Indication: Endometrial cancer recurrent
     Dosage: UNK UNK, SINGLE
     Route: 042
     Dates: start: 20250515, end: 20250604
  2. CARBOPLATIN [Suspect]
     Active Substance: CARBOPLATIN
     Dosage: UNK UNK, SINGLE
     Route: 042
     Dates: start: 2025, end: 20250903
  3. CARBOPLATIN [Suspect]
     Active Substance: CARBOPLATIN
     Dosage: UNK
     Route: 042
     Dates: start: 2025, end: 20251002
  4. PACLITAXEL [Suspect]
     Active Substance: PACLITAXEL
     Indication: Endometrial cancer recurrent
     Dosage: UNK UNK, SINGLE
     Route: 042
     Dates: start: 20250515, end: 20250604
  5. PACLITAXEL [Suspect]
     Active Substance: PACLITAXEL
     Dosage: UNK UNK, SINGLE
     Route: 042
     Dates: start: 2025, end: 20250903
  6. PACLITAXEL [Suspect]
     Active Substance: PACLITAXEL
     Dosage: UNK
     Route: 042
     Dates: start: 2025, end: 20251002
  7. DOSTARLIMAB [Suspect]
     Active Substance: DOSTARLIMAB
     Indication: Endometrial cancer recurrent
     Dosage: 500 MG, SINGLE
     Route: 042
     Dates: start: 20250515, end: 20250604
  8. DOSTARLIMAB [Suspect]
     Active Substance: DOSTARLIMAB
     Dosage: 500 MG, SINGLE
     Route: 042
     Dates: start: 2025, end: 20250903
  9. DOSTARLIMAB [Suspect]
     Active Substance: DOSTARLIMAB
     Dosage: 500 MG, EVERY 3 WEEKS
     Route: 042
     Dates: start: 2025, end: 20251002

REACTIONS (5)
  - Toxic skin eruption [Not Recovered/Not Resolved]
  - Thrombocytopenia [Recovered/Resolved]
  - Endometrial cancer recurrent [Unknown]
  - Malignant neoplasm progression [Unknown]
  - Rash [Recovered/Resolved]

NARRATIVE: CASE EVENT DATE: 20250101
